FAERS Safety Report 8765168 (Version 4)
Quarter: 2013Q3

REPORT INFORMATION
  Report Type: Report from Study
  Country: JP (occurrence: JP)
  Receive Date: 20120903
  Receipt Date: 20130717
  Transmission Date: 20140515
  Serious: Yes (Hospitalization, Other)
  Sender: FDA-Public Use
  Company Number: JP-009507513-1208JPN009711

PATIENT
  Age: 64 Year
  Sex: Male
  Weight: 74 kg

DRUGS (17)
  1. PEGINTRON [Suspect]
     Indication: CHRONIC HEPATITIS C
     Dosage: 1.5 MICROGRAM, QW DAILY DOSE UNKNOWN
     Route: 058
     Dates: start: 20120615, end: 20120615
  2. PEGINTRON [Suspect]
     Dosage: 1.5 MICROGRAM PER KILOGRAM, QW DAILY DOSE UNKNOWN
     Route: 058
     Dates: start: 20120629, end: 20120720
  3. PEGINTRON [Suspect]
     Dosage: 1.5 MICROGRAM, QW DAILY DOSE UNKNOWN
     Route: 058
     Dates: start: 20121005
  4. REBETOL [Suspect]
     Indication: CHRONIC HEPATITIS C
     Dosage: 800 MG, QD
     Route: 048
     Dates: start: 20120615, end: 20120618
  5. REBETOL [Suspect]
     Dosage: 800 MG, QD
     Route: 048
     Dates: start: 20120629, end: 20120720
  6. REBETOL [Suspect]
     Dosage: 600 MG, QD
     Route: 048
     Dates: start: 20120721, end: 20120727
  7. REBETOL [Suspect]
     Dosage: 800 MG, QD
     Route: 048
     Dates: start: 20121005, end: 20121101
  8. REBETOL [Suspect]
     Dosage: 600 MG, QD
     Route: 048
     Dates: start: 20121102
  9. TELAVIC [Suspect]
     Indication: CHRONIC HEPATITIS C
     Dosage: 2250 MG, QD
     Route: 048
     Dates: start: 20120615, end: 20120618
  10. TELAVIC [Suspect]
     Dosage: 500 MG, TID
     Route: 048
     Dates: start: 20120629, end: 20120720
  11. URSO [Concomitant]
     Indication: CHRONIC HEPATITIS C
     Dosage: 600 MG, QD
     Route: 048
     Dates: start: 20090818
  12. URSO [Concomitant]
     Dosage: 600 UNK, UNK
     Route: 048
     Dates: start: 20030212
  13. ACINON [Concomitant]
     Indication: GASTROOESOPHAGEAL REFLUX DISEASE
     Dosage: 150 MG, QD
     Route: 048
     Dates: start: 20060309
  14. BLOPRESS [Concomitant]
     Indication: HYPERTENSION
     Dosage: 8 MG, QD
     Route: 048
  15. ADALAT L [Concomitant]
     Indication: HYPERTENSION
     Dosage: 10 MG, QD
     Route: 048
  16. MAINTATE [Concomitant]
     Indication: HYPERTENSION
     Dosage: 2.5 MG, BID
     Route: 048
  17. ALOSITOL [Concomitant]
     Indication: HYPERURICAEMIA
     Dosage: 100 MG, QD
     Route: 048

REACTIONS (4)
  - Blood creatine increased [Recovered/Resolved]
  - Hyperuricaemia [Recovered/Resolved]
  - Blood creatine increased [Recovered/Resolved]
  - Haemoglobin decreased [Recovering/Resolving]
